FAERS Safety Report 19154394 (Version 2)
Quarter: 2021Q2

REPORT INFORMATION
  Report Type: Report from Study
  Country: US (occurrence: US)
  Receive Date: 20210419
  Receipt Date: 20210602
  Transmission Date: 20210717
  Serious: Yes (Hospitalization)
  Sender: FDA-Public Use
  Company Number: US-OTSUKA-2021_012744

PATIENT
  Age: 67 Year
  Sex: Female

DRUGS (2)
  1. ASTX727 [Suspect]
     Active Substance: CEDAZURIDINE\DECITABINE
     Indication: ACUTE MYELOID LEUKAEMIA
     Dosage: 1 DF, QD (1?5 DAYS) OF 28 DAY CYCLE
     Route: 065
     Dates: start: 20210208
  2. VENCLEXTA [Concomitant]
     Active Substance: VENETOCLAX
     Indication: ACUTE MYELOID LEUKAEMIA
     Dosage: 200 MG, QD (DAY 1?14) OF EACH CYCLE
     Route: 065
     Dates: start: 2019, end: 2021

REACTIONS (5)
  - White blood cell count decreased [Unknown]
  - Cerebral haemorrhage [Unknown]
  - Vitreous floaters [Unknown]
  - Platelet count decreased [Unknown]
  - Product use in unapproved indication [Unknown]

NARRATIVE: CASE EVENT DATE: 20210208
